FAERS Safety Report 5080452-7 (Version None)
Quarter: 2006Q3

REPORT INFORMATION
  Report Type: 
  Country: None (occurrence: None)
  Receive Date: 20060815
  Receipt Date: 20060706
  Transmission Date: 20061208
  Serious: Yes (Hospitalization, Disabling, Other)
  Sender: FDA-Public Use
  Company Number: DE-BRISTOL-MYERS SQUIBB COMPANY-13442355

PATIENT
  Age: 75 Year
  Sex: Female

DRUGS (7)
  1. ERBITUX [Suspect]
     Indication: COLORECTAL CANCER METASTATIC
     Route: 041
     Dates: start: 20051122, end: 20060314
  2. IRINOTECAN HCL [Suspect]
     Indication: COLORECTAL CANCER METASTATIC
     Route: 042
     Dates: start: 20051122, end: 20060321
  3. FLUOROURACIL [Suspect]
     Indication: COLORECTAL CANCER METASTATIC
     Route: 042
     Dates: start: 20051122, end: 20060321
  4. FOLINIC ACID [Suspect]
     Indication: COLORECTAL CANCER METASTATIC
     Route: 042
     Dates: start: 20051122, end: 20060321
  5. METOPROLOL TARTRATE [Suspect]
     Route: 048
     Dates: end: 20060407
  6. L-THYROXINE [Suspect]
     Route: 048
  7. TIMOLOL MALEATE [Concomitant]
     Route: 047

REACTIONS (4)
  - DERMATITIS EXFOLIATIVE [None]
  - HAEMORRHAGE [None]
  - PALMAR-PLANTAR ERYTHRODYSAESTHESIA SYNDROME [None]
  - SKIN ULCER [None]
